FAERS Safety Report 13495171 (Version 1)
Quarter: 2017Q2

REPORT INFORMATION
  Report Type: Spontaneous
  Country: US (occurrence: US)
  Receive Date: 20170428
  Receipt Date: 20170428
  Transmission Date: 20170830
  Serious: No
  Sender: FDA-Public Use
  Company Number: US-BAYER-2017-081030

PATIENT
  Age: 54 Year
  Sex: Male
  Weight: 117.96 kg

DRUGS (2)
  1. CLARITIN [Suspect]
     Active Substance: LORATADINE
     Indication: HYPERSENSITIVITY
     Dosage: 1 DF, QD
     Route: 048
     Dates: start: 201704, end: 20170426
  2. CLARITIN [Suspect]
     Active Substance: LORATADINE
     Indication: VIRAL UPPER RESPIRATORY TRACT INFECTION

REACTIONS (1)
  - Somnolence [Recovered/Resolved]

NARRATIVE: CASE EVENT DATE: 201704
